FAERS Safety Report 9366724 (Version 1)
Quarter: 2013Q2

REPORT INFORMATION
  Report Type: Spontaneous
  Country: ES (occurrence: None)
  Receive Date: 20130620
  Receipt Date: 20130620
  Transmission Date: 20140414
  Serious: Yes (Hospitalization)
  Sender: FDA-Public Use
  Company Number: VAL_02590_2013

PATIENT
  Age: 67 Year
  Sex: Female

DRUGS (6)
  1. CALCITRIOL [Suspect]
     Indication: HYPOPARATHYROIDISM
  2. CALCITRIOL [Suspect]
     Indication: HYPOTHYROIDISM
  3. CALCIUM CARBONATE [Suspect]
     Indication: HYPOPARATHYROIDISM
  4. CALCIUM CARBONATE [Suspect]
     Indication: HYPOTHYROIDISM
  5. LEVOTHYROXINE (LEVOTHYROXINE) [Suspect]
     Indication: HYPOTHYROIDISM
  6. LEVOTHYROXINE (LEVOTHYROXINE) [Suspect]
     Indication: HYPOPARATHYROIDISM

REACTIONS (2)
  - Milk-alkali syndrome [None]
  - Metabolic alkalosis [None]
